FAERS Safety Report 13697121 (Version 1)
Quarter: 2017Q2

REPORT INFORMATION
  Report Type: Spontaneous
  Country: US (occurrence: US)
  Receive Date: 20170628
  Receipt Date: 20170628
  Transmission Date: 20170830
  Serious: No
  Sender: FDA-Public Use
  Company Number: US-CELGENEUS-USA-20170605438

PATIENT
  Age: 35 Year
  Sex: Male

DRUGS (1)
  1. OTEZLA [Suspect]
     Active Substance: APREMILAST
     Indication: PSORIASIS
     Dosage: 60 MILLIGRAM
     Route: 048
     Dates: start: 201704

REACTIONS (5)
  - Arthralgia [Not Recovered/Not Resolved]
  - Diarrhoea [Recovering/Resolving]
  - Nausea [Recovering/Resolving]
  - Mood altered [Not Recovered/Not Resolved]
  - Tension headache [Not Recovered/Not Resolved]

NARRATIVE: CASE EVENT DATE: 201704
